FAERS Safety Report 9167868 (Version 1)
Quarter: 2013Q1

REPORT INFORMATION
  Report Type: Spontaneous
  Country: US (occurrence: None)
  Receive Date: 20130314
  Receipt Date: 20130314
  Transmission Date: 20140127
  Serious: Yes (Death)
  Sender: FDA-Public Use
  Company Number: MSER20130009

PATIENT
  Sex: Male

DRUGS (1)
  1. MORPHINE SULFATE ER [Suspect]
     Indication: DRUG ABUSE

REACTIONS (2)
  - Toxicity to various agents [None]
  - Drug abuse [None]
